FAERS Safety Report 10625334 (Version 1)
Quarter: 2014Q4

REPORT INFORMATION
  Report Type: Spontaneous
  Country: GB (occurrence: None)
  Receive Date: 20141202
  Receipt Date: 20141202
  Transmission Date: 20150529
  Serious: Yes (Life-Threatening)
  Sender: FDA-Public Use
  Company Number: GB-017817

PATIENT
  Age: 16 Year
  Sex: Male
  Weight: 50 kg

DRUGS (5)
  1. FLUDROCORTISONE ACETATE. [Concomitant]
     Active Substance: FLUDROCORTISONE ACETATE
  2. COTRIMOXAZOLE [Concomitant]
     Active Substance: SULFAMETHOXAZOLE\TRIMETHOPRIM
  3. FULTIUM [Concomitant]
  4. HYDROCORTISONE. [Concomitant]
     Active Substance: HYDROCORTISONE
  5. ZOMACTON [Suspect]
     Active Substance: SOMATROPIN
     Indication: BODY HEIGHT BELOW NORMAL
     Route: 058
     Dates: start: 20071016

REACTIONS (1)
  - Osteosarcoma [None]

NARRATIVE: CASE EVENT DATE: 201407
